FAERS Safety Report 6390467-4 (Version None)
Quarter: 2009Q4

REPORT INFORMATION
  Report Type: 
  Country: None (occurrence: None)
  Receive Date: 20091005
  Receipt Date: 20091005
  Transmission Date: 20100525
  Serious: Yes (Hospitalization)
  Sender: FDA-Public Use
  Company Number: None

PATIENT
  Age: 70 Year
  Sex: Male
  Weight: 68 kg

DRUGS (1)
  1. WARFARIN SODIUM [Suspect]
     Indication: ATRIAL FIBRILLATION
     Dosage: 5 MG EVERY DAY PO
     Route: 048
     Dates: start: 20090921, end: 20090928

REACTIONS (5)
  - GASTRIC HAEMORRHAGE [None]
  - HYPONATRAEMIA [None]
  - INTERNATIONAL NORMALISED RATIO ABNORMAL [None]
  - LOBAR PNEUMONIA [None]
  - PROTHROMBIN TIME PROLONGED [None]
